FAERS Safety Report 4438045-8 (Version None)
Quarter: 2004Q3

REPORT INFORMATION
  Report Type: 
  Country: None (occurrence: None)
  Receive Date: 20040831
  Receipt Date: 20040511
  Transmission Date: 20050211
  Serious: No
  Sender: FDA-Public Use
  Company Number: US-GLAXOSMITHKLINE-A0510434A

PATIENT
  Age: 58 Year
  Sex: Female

DRUGS (4)
  1. WELLBUTRIN XL [Suspect]
     Indication: DEPRESSION
     Dosage: 150MG PER DAY
     Route: 048
  2. LIPITOR [Concomitant]
  3. EFFEXOR [Concomitant]
     Dosage: 225MG PER DAY
  4. WELLBUTRIN SR [Concomitant]
     Route: 048

REACTIONS (3)
  - AGITATION [None]
  - INSOMNIA [None]
  - NAUSEA [None]
